FAERS Safety Report 17455979 (Version 3)
Quarter: 2020Q1

REPORT INFORMATION
  Report Type: Spontaneous
  Country: US (occurrence: US)
  Receive Date: 20200225
  Receipt Date: 20200326
  Transmission Date: 20200409
  Serious: Yes (Other)
  Sender: FDA-Public Use
  Company Number: US-GLAXOSMITHKLINE-US2020AMR030039

PATIENT
  Age: 55 Year
  Sex: Male

DRUGS (1)
  1. NUCALA [Suspect]
     Active Substance: MEPOLIZUMAB
     Indication: PRODUCT USED FOR UNKNOWN INDICATION
     Dosage: 100 MG, CYC (EVERY 28 DAYS)
     Route: 065
     Dates: start: 201808, end: 201812

REACTIONS (1)
  - Anterograde amnesia [Recovered/Resolved]

NARRATIVE: CASE EVENT DATE: 201809
